FAERS Safety Report 25741206 (Version 1)
Quarter: 2025Q3

REPORT INFORMATION
  Report Type: Report from Study
  Country: US (occurrence: US)
  Receive Date: 20250829
  Receipt Date: 20250829
  Transmission Date: 20251021
  Serious: Yes (Other)
  Sender: SUNOVION
  Company Number: US-SMPA-2024SPA000719

PATIENT
  Age: 82 Year
  Sex: Male

DRUGS (1)
  1. ORGOVYX [Suspect]
     Active Substance: RELUGOLIX
     Indication: Prostate cancer
     Dosage: 120 MG, QD
     Route: 048
     Dates: start: 20211221

REACTIONS (7)
  - Varicose vein operation [Unknown]
  - Somnolence [Unknown]
  - Joint swelling [Unknown]
  - Peripheral swelling [Unknown]
  - Gait disturbance [Unknown]
  - Pain in extremity [Unknown]
  - Incorrect dose administered [Recovered/Resolved]
